FAERS Safety Report 7590066-2 (Version None)
Quarter: 2011Q3

REPORT INFORMATION
  Report Type: 
  Country: None (occurrence: None)
  Receive Date: 20110705
  Receipt Date: 20110624
  Transmission Date: 20111222
  Serious: Yes (Death, Life-Threatening)
  Sender: FDA-Public Use
  Company Number: B0683410A

PATIENT
  Sex: Female
  Weight: 61 kg

DRUGS (58)
  1. ULCERLMIN [Concomitant]
     Dosage: 3G PER DAY
     Route: 048
     Dates: start: 20080224, end: 20080313
  2. KYTRIL [Concomitant]
     Dosage: 6MG PER DAY
     Route: 042
     Dates: start: 20080129, end: 20080220
  3. FUROSEMIDE [Concomitant]
     Dosage: 20MG PER DAY
     Route: 042
     Dates: start: 20080129, end: 20080314
  4. REHABIX-K NO.2 [Concomitant]
     Dosage: 1000ML PER DAY
     Route: 042
     Dates: start: 20080201, end: 20080314
  5. NEOLAMIN [Concomitant]
     Dosage: 1IUAX PER DAY
     Route: 042
     Dates: start: 20080201, end: 20080314
  6. HAPTOGLOBIN [Concomitant]
     Dosage: 2IU3 PER DAY
     Route: 042
     Dates: start: 20080201, end: 20080201
  7. FUNGUARD [Concomitant]
     Dosage: 50MG PER DAY
     Route: 042
     Dates: start: 20080205, end: 20080314
  8. SULFAMETHOXAZOLE [Concomitant]
     Dosage: 2IUAX PER DAY
     Route: 048
     Dates: start: 20080131, end: 20080309
  9. HEAVY MAGNESIUM OXIDE [Concomitant]
     Dosage: 2.01G PER DAY
     Route: 048
     Dates: start: 20080201, end: 20080207
  10. AZUNOL [Concomitant]
     Dosage: 20G PER DAY
     Route: 061
     Dates: start: 20080215, end: 20080225
  11. HYALEIN [Concomitant]
     Dosage: 10ML PER DAY
     Route: 031
     Dates: start: 20080224, end: 20080306
  12. LOPEMIN [Concomitant]
     Dosage: 2MG PER DAY
     Route: 048
     Dates: start: 20080301, end: 20080313
  13. PROTEAMIN [Concomitant]
     Dosage: 100ML PER DAY
     Route: 042
     Dates: start: 20080201, end: 20080314
  14. POTASSIUM CHLORIDE [Concomitant]
     Dosage: 10ML PER DAY
     Route: 042
     Dates: start: 20080201, end: 20080314
  15. SODIUM CHLORIDE [Concomitant]
     Dosage: 40ML PER DAY
     Route: 042
     Dates: start: 20080206, end: 20080311
  16. NEO-MINOPHAGEN-C [Concomitant]
     Dosage: 60ML PER DAY
     Route: 042
     Dates: start: 20080219, end: 20080302
  17. ALKERAN [Suspect]
     Indication: ALLOGENIC BONE MARROW TRANSPLANTATION THERAPY
     Dosage: 70MG PER DAY
     Route: 042
     Dates: start: 20080128, end: 20080129
  18. PREDNISOLONE [Suspect]
     Dosage: 20MG PER DAY
     Route: 042
     Dates: start: 20080129, end: 20080314
  19. PROPETO [Concomitant]
     Dosage: 30G PER DAY
     Route: 061
     Dates: start: 20080223, end: 20080305
  20. ALMETA [Concomitant]
     Dosage: 15G PER DAY
     Route: 061
     Dates: start: 20080301, end: 20080301
  21. CONCLYTE-MG [Concomitant]
     Dosage: 14ML PER DAY
     Route: 042
     Dates: start: 20080206, end: 20080303
  22. ALBUMIN (HUMAN) [Concomitant]
     Dosage: 50ML PER DAY
     Route: 042
     Dates: start: 20080220, end: 20080314
  23. HANP [Concomitant]
     Dosage: 4.5MG PER DAY
     Route: 042
     Dates: start: 20080222, end: 20080301
  24. ASPARA K [Concomitant]
     Dosage: 40ML PER DAY
     Route: 042
     Dates: start: 20080306, end: 20080310
  25. METHOTREXATE [Concomitant]
     Indication: IMMUNOSUPPRESSION
     Dosage: 25MG PER DAY
     Route: 065
     Dates: start: 20080203, end: 20080203
  26. SOLITA-T [Concomitant]
     Dosage: 2000ML PER DAY
     Route: 042
     Dates: start: 20080129, end: 20080313
  27. CONCLYTE-PK [Concomitant]
     Dosage: 40ML PER DAY
     Route: 042
     Dates: start: 20080311, end: 20080314
  28. PROGRAF [Suspect]
     Indication: IMMUNOSUPPRESSION
     Dosage: .6MG PER DAY
     Dates: start: 20080131, end: 20080319
  29. HACHIAZULE [Concomitant]
     Dosage: 8G PER DAY
     Route: 002
     Dates: start: 20080225, end: 20080309
  30. GAMMAGARD [Concomitant]
     Dosage: 7.5G PER DAY
     Route: 042
     Dates: start: 20080123, end: 20080313
  31. ANTHROBIN P [Concomitant]
     Dosage: 1.5IU3 PER DAY
     Route: 042
     Dates: start: 20080131, end: 20080313
  32. SOLU-CORTEF [Concomitant]
     Dosage: 300MG PER DAY
     Route: 042
     Dates: start: 20080201, end: 20080201
  33. ZOVIRAX [Concomitant]
     Dosage: 500MG PER DAY
     Route: 042
     Dates: start: 20080202, end: 20080310
  34. METHOTREXATE [Concomitant]
     Dosage: 25MG PER DAY
     Route: 065
     Dates: start: 20080205, end: 20080205
  35. SODIUM CHLORIDE [Concomitant]
     Dosage: 40ML PER DAY
     Route: 042
     Dates: start: 20080312, end: 20080314
  36. FLUDARA [Suspect]
     Indication: ALLOGENIC BONE MARROW TRANSPLANTATION THERAPY
     Dosage: 25MGM2 PER DAY
     Route: 042
     Dates: start: 20080126, end: 20080130
  37. ECOLICIN [Concomitant]
     Dosage: 5.1ML PER DAY
     Route: 031
     Dates: start: 20080224, end: 20080312
  38. URSO 250 [Concomitant]
     Dosage: 100MG PER DAY
     Route: 048
     Dates: start: 20080310, end: 20080316
  39. ELEMENMIC [Concomitant]
     Dosage: 2ML PER DAY
     Route: 042
     Dates: start: 20080201, end: 20080314
  40. ATARAX [Concomitant]
     Dosage: 25MG PER DAY
     Route: 042
     Dates: start: 20080201, end: 20080221
  41. METHOTREXATE [Concomitant]
     Dosage: 11MG PER DAY
     Route: 065
     Dates: start: 20080208, end: 20080208
  42. POLYMYXIN B SULFATE [Concomitant]
     Dosage: 3000IU3 PER DAY
     Route: 048
     Dates: start: 20080129, end: 20080228
  43. SEPAMIT [Concomitant]
     Dosage: 15MG PER DAY
     Route: 048
     Dates: start: 20080129, end: 20080228
  44. DEPAS [Concomitant]
     Route: 048
     Dates: start: 20080301, end: 20080305
  45. ACETAMINOPHEN [Concomitant]
     Route: 048
     Dates: start: 20080310, end: 20080319
  46. FRAGMIN [Concomitant]
     Dosage: 4.5ML PER DAY
     Route: 042
     Dates: start: 20080129, end: 20080314
  47. SOLITA-T [Concomitant]
     Dosage: 1000ML PER DAY
     Route: 042
     Dates: start: 20080206, end: 20080302
  48. VEEN-3G [Concomitant]
     Dosage: 2000ML PER DAY
     Route: 042
     Dates: start: 20080304, end: 20080311
  49. NOVOLIN R [Concomitant]
     Dosage: .16IUAX PER DAY
     Route: 042
     Dates: start: 20080304, end: 20080314
  50. CALCICOL [Concomitant]
     Dosage: 20ML PER DAY
     Route: 042
     Dates: start: 20080305, end: 20080314
  51. XYLOCAINE [Concomitant]
     Dosage: 10ML PER DAY
     Route: 061
     Dates: start: 20080225, end: 20080309
  52. ALLOID G [Concomitant]
     Dosage: 60ML PER DAY
     Route: 048
     Dates: start: 20080313, end: 20080319
  53. SOLITA-T [Concomitant]
     Dosage: 2000ML PER DAY
     Route: 042
     Dates: start: 20080129, end: 20080312
  54. CEFTAZIDIME SODIUM [Concomitant]
     Dosage: 2G PER DAY
     Route: 042
     Dates: start: 20080205, end: 20080213
  55. MEROPENEM [Concomitant]
     Dosage: 2500MG PER DAY
     Route: 042
     Dates: start: 20080214, end: 20080314
  56. ALBUMINAR [Concomitant]
     Dosage: 250ML PER DAY
     Route: 042
     Dates: start: 20080302, end: 20080302
  57. ZANTAC [Concomitant]
     Dosage: 100MG PER DAY
     Route: 042
     Dates: start: 20080129, end: 20080314
  58. GAMMAGARD [Concomitant]
     Dosage: 7.5G PER DAY
     Route: 042
     Dates: start: 20080123, end: 20080313

REACTIONS (8)
  - HYPERGLYCAEMIA [None]
  - CARDIAC FAILURE [None]
  - ADVERSE REACTION [None]
  - HEPATIC VEIN OCCLUSION [None]
  - FEBRILE NEUTROPENIA [None]
  - GRAFT VERSUS HOST DISEASE [None]
  - OEDEMA [None]
  - ARRHYTHMIA [None]
